FAERS Safety Report 19145313 (Version 2)
Quarter: 2021Q3

REPORT INFORMATION
  Report Type: Spontaneous
  Country: BE (occurrence: BE)
  Receive Date: 20210416
  Receipt Date: 20210928
  Transmission Date: 20211014
  Serious: Yes (Other)
  Sender: FDA-Public Use
  Company Number: BE-TAKEDA-2021TUS023293

PATIENT
  Sex: Female
  Weight: 55.3 kg

DRUGS (1)
  1. ENTYVIO [Suspect]
     Active Substance: VEDOLIZUMAB
     Indication: CROHN^S DISEASE
     Dosage: 300 MILLIGRAM, Q4WEEKS
     Route: 042
     Dates: start: 20200604, end: 20200914

REACTIONS (3)
  - Intestinal fistula [Unknown]
  - Abscess intestinal [Unknown]
  - Terminal ileitis [Unknown]
